FAERS Safety Report 7301842-5 (Version None)
Quarter: 2011Q1

REPORT INFORMATION
  Report Type: 
  Country: None (occurrence: None)
  Receive Date: 20110218
  Receipt Date: 20110210
  Transmission Date: 20110831
  Serious: Yes (Other)
  Sender: FDA-Public Use
  Company Number: US-ROCHE-735756

PATIENT
  Sex: Female
  Weight: 62.1 kg

DRUGS (1)
  1. ACCUTANE [Suspect]
     Indication: ACNE
     Route: 065
     Dates: start: 19930101, end: 19941231

REACTIONS (6)
  - COLITIS ULCERATIVE [None]
  - MENTAL DISORDER [None]
  - DEPRESSION [None]
  - INFLAMMATORY BOWEL DISEASE [None]
  - GASTROINTESTINAL INJURY [None]
  - BIPOLAR DISORDER [None]
